FAERS Safety Report 9059276 (Version 2)
Quarter: 2013Q1

REPORT INFORMATION
  Report Type: Spontaneous
  Country: JP (occurrence: JP)
  Receive Date: 20130211
  Receipt Date: 20130225
  Transmission Date: 20140127
  Serious: Yes (Hospitalization, Other)
  Sender: FDA-Public Use
  Company Number: JP-ASTRAZENECA-2013SE08980

PATIENT
  Age: 56 Year
  Sex: Male
  Weight: 59 kg

DRUGS (8)
  1. MEROPEN [Suspect]
     Indication: PNEUMONIA ASPIRATION
     Route: 042
     Dates: start: 20130124, end: 20130129
  2. MUCODYNE [Concomitant]
     Indication: PNEUMONIA ASPIRATION
     Route: 048
  3. ARTIST [Concomitant]
     Indication: CONGESTIVE CARDIOMYOPATHY
     Route: 048
     Dates: end: 20130126
  4. TAKEPRON [Concomitant]
     Indication: GASTRITIS
     Route: 048
  5. BFLUID [Concomitant]
     Route: 065
     Dates: end: 20130128
  6. SULBACILLIN [Concomitant]
     Indication: PNEUMONIA ASPIRATION
     Route: 042
     Dates: start: 20130123, end: 20130124
  7. WARFARIN [Concomitant]
     Indication: ATRIAL FIBRILLATION
     Route: 048
     Dates: end: 20130124
  8. UNKNOWN [Concomitant]
     Route: 048
     Dates: start: 20130125, end: 20130128

REACTIONS (2)
  - Ammonia increased [Recovering/Resolving]
  - International normalised ratio increased [Recovering/Resolving]
